FAERS Safety Report 4989112-1 (Version None)
Quarter: 2006Q1

REPORT INFORMATION
  Report Type: 
  Country: None (occurrence: None)
  Receive Date: 20060314
  Receipt Date: 20051220
  Transmission Date: 20060701
  Serious: Yes (Other)
  Sender: FDA-Public Use
  Company Number: 200515104BCC

PATIENT
  Sex: Female
  Weight: 86.1834 kg

DRUGS (4)
  1. ALEVE [Suspect]
     Indication: PAIN
     Dosage: ORAL
     Route: 048
  2. ADVIL [Concomitant]
  3. LITHIUM CARBONATE [Concomitant]
  4. PROZAC [Concomitant]

REACTIONS (1)
  - RECTAL HAEMORRHAGE [None]
